FAERS Safety Report 8184581-0 (Version None)
Quarter: 2012Q1

REPORT INFORMATION
  Report Type: 
  Country: None (occurrence: None)
  Receive Date: 20120305
  Receipt Date: 20120227
  Transmission Date: 20120608
  Serious: Yes (Other)
  Sender: FDA-Public Use
  Company Number: JP-MERCK-1202USA02994

PATIENT
  Age: 66 Year
  Sex: Male
  Weight: 67 kg

DRUGS (12)
  1. PEPCID [Suspect]
     Indication: GASTROOESOPHAGEAL REFLUX DISEASE
     Route: 048
     Dates: start: 20120213, end: 20120214
  2. ZOLPIDEM [Suspect]
     Indication: INSOMNIA
     Route: 048
     Dates: start: 20120128, end: 20120212
  3. LOXONIN [Suspect]
     Indication: NASOPHARYNGEAL CANCER
     Route: 048
     Dates: start: 20120131, end: 20120212
  4. CEFAZOLIN SODIUM [Concomitant]
     Route: 065
     Dates: start: 20120212
  5. ACETAMINOPHEN [Suspect]
     Indication: NASOPHARYNGEAL CANCER
     Route: 048
     Dates: start: 20120106, end: 20120125
  6. ACETAMINOPHEN [Suspect]
     Route: 048
     Dates: start: 20120126, end: 20120212
  7. URSO 250 [Concomitant]
     Route: 065
     Dates: start: 20120213
  8. UFT [Suspect]
     Route: 065
  9. MAGLAX (MAGNESIUM OXIDE) [Concomitant]
     Indication: CONSTIPATION
     Route: 065
     Dates: start: 20120203, end: 20120212
  10. SOLANTAL [Suspect]
     Indication: NASOPHARYNGEAL CANCER
     Route: 048
     Dates: start: 20120128, end: 20120212
  11. PEPCID RPD [Suspect]
     Indication: GASTROOESOPHAGEAL REFLUX DISEASE
     Route: 048
     Dates: start: 20120212, end: 20120212
  12. ACETYLCYSTEINE [Concomitant]
     Route: 048
     Dates: start: 20120213

REACTIONS (6)
  - PYREXIA [None]
  - DIARRHOEA [None]
  - RENAL IMPAIRMENT [None]
  - RASH [None]
  - HEPATIC FUNCTION ABNORMAL [None]
  - PANCYTOPENIA [None]
